FAERS Safety Report 21700477 (Version 1)
Quarter: 2022Q4

REPORT INFORMATION
  Report Type: Report from Study
  Country: US (occurrence: US)
  Receive Date: 20221208
  Receipt Date: 20221208
  Transmission Date: 20230113
  Serious: Yes (Other)
  Sender: FDA-Public Use
  Company Number: US-JAZZ-2022-US-035853

PATIENT

DRUGS (4)
  1. XYWAV [Suspect]
     Active Substance: CALCIUM OXYBATE\MAGNESIUM OXYBATE\POTASSIUM OXYBATE\SODIUM OXYBATE
     Indication: Narcolepsy
     Dosage: 3 GRAM, BID
  2. XYWAV [Suspect]
     Active Substance: CALCIUM OXYBATE\MAGNESIUM OXYBATE\POTASSIUM OXYBATE\SODIUM OXYBATE
     Indication: Cataplexy
     Dosage: 2.75 GRAM, BID
  3. XYWAV [Suspect]
     Active Substance: CALCIUM OXYBATE\MAGNESIUM OXYBATE\POTASSIUM OXYBATE\SODIUM OXYBATE
     Indication: Somnolence
  4. OMEPRAZOLE [Concomitant]
     Active Substance: OMEPRAZOLE
     Indication: Product used for unknown indication
     Dosage: UNK
     Dates: start: 20221020

REACTIONS (16)
  - Suicidal ideation [Unknown]
  - Self-injurious ideation [Unknown]
  - Motor dysfunction [Unknown]
  - Vision blurred [Unknown]
  - Feeling abnormal [Unknown]
  - Tongue biting [Unknown]
  - Abnormal dreams [Unknown]
  - Feeling drunk [Unknown]
  - Endometriosis [Unknown]
  - Fall [Unknown]
  - Dizziness [Unknown]
  - Night sweats [Unknown]
  - Dyspnoea [Unknown]
  - Abnormal behaviour [Unknown]
  - Bladder disorder [Unknown]
  - Therapeutic product effect incomplete [Unknown]
